FAERS Safety Report 24732832 (Version 1)
Quarter: 2024Q4

REPORT INFORMATION
  Report Type: Other
  Country: JP (occurrence: JP)
  Receive Date: 20241213
  Receipt Date: 20241213
  Transmission Date: 20250115
  Serious: Yes (Death, Other)
  Sender: EMD SERONO INC
  Company Number: JP-Merck Healthcare KGaA-2024065549

PATIENT
  Age: 68 Year
  Sex: Male

DRUGS (1)
  1. TEPMETKO [Suspect]
     Active Substance: TEPOTINIB HYDROCHLORIDE
     Indication: Non-small cell lung cancer metastatic

REACTIONS (9)
  - Respiratory failure [Fatal]
  - Malignant pleural effusion [Fatal]
  - Tubulointerstitial nephritis [Unknown]
  - Renal injury [Recovering/Resolving]
  - Hypoalbuminaemia [Unknown]
  - Generalised oedema [Recovering/Resolving]
  - Disease progression [Unknown]
  - Nausea [Unknown]
  - Vomiting [Unknown]
